FAERS Safety Report 9287044 (Version 2)
Quarter: 2013Q3

REPORT INFORMATION
  Report Type: Report from Study
  Country: US (occurrence: US)
  Receive Date: 20130513
  Receipt Date: 20130801
  Transmission Date: 20140515
  Serious: Yes (Hospitalization)
  Sender: FDA-Public Use
  Company Number: US-ELI_LILLY_AND_COMPANY-US201109007174

PATIENT
  Age: 75 Year
  Sex: Female
  Weight: 82.99 kg

DRUGS (19)
  1. TERIPARATIDE [Suspect]
     Indication: OSTEOPOROSIS
     Dosage: 20 UG, QD
     Route: 058
     Dates: start: 20110916
  2. TERIPARATIDE [Suspect]
     Dosage: 20 UG, QD
     Route: 058
  3. TERIPARATIDE [Suspect]
     Dosage: 20 UG, QD
     Route: 058
  4. TERIPARATIDE [Suspect]
     Dosage: 20 UG, QD
     Route: 058
  5. TERIPARATIDE [Suspect]
     Dosage: UNK, QD
     Route: 058
     Dates: start: 20110901
  6. PREDNISONE [Suspect]
     Indication: POLYMYALGIA RHEUMATICA
     Dosage: 5 MG, OTHER
     Dates: start: 2007
  7. NOVOLOG [Concomitant]
     Dosage: UNK, EVERY 6 HRS
  8. VITAMIN B12 [Concomitant]
     Dosage: UNK, MONTHLY (1/M)
  9. VITAMIN D [Concomitant]
  10. LANTUS [Concomitant]
  11. AMBIEN [Concomitant]
  12. PAXIL [Concomitant]
  13. PREVACID [Concomitant]
  14. XYZAL [Concomitant]
  15. TRAMADOL [Concomitant]
  16. LORTAB [Concomitant]
     Dosage: UNK, PRN
  17. CALCIUM WITH VITAMIN D [Concomitant]
  18. FOSAMAX [Concomitant]
  19. ACTONEL [Concomitant]

REACTIONS (15)
  - Hip fracture [Recovered/Resolved]
  - Fall [Recovered/Resolved]
  - Local swelling [Unknown]
  - Increased tendency to bruise [Unknown]
  - Head discomfort [Unknown]
  - Varicose vein [Unknown]
  - Vertigo positional [Unknown]
  - Hyperproteinaemia [Unknown]
  - Cataract [Unknown]
  - Contusion [Unknown]
  - Skin disorder [Unknown]
  - Fall [Unknown]
  - Dizziness [Unknown]
  - Injection site bruising [Not Recovered/Not Resolved]
  - Vertigo [Unknown]
